APPROVED DRUG PRODUCT: TAVABOROLE
Active Ingredient: TAVABOROLE
Strength: 5%
Dosage Form/Route: SOLUTION;TOPICAL
Application: A211848 | Product #001 | TE Code: AB
Applicant: PADAGIS US LLC
Approved: Oct 13, 2020 | RLD: No | RS: No | Type: RX